FAERS Safety Report 24839242 (Version 1)
Quarter: 2025Q1

REPORT INFORMATION
  Report Type: Spontaneous
  Country: PL (occurrence: PL)
  Receive Date: 20250114
  Receipt Date: 20250114
  Transmission Date: 20250408
  Serious: Yes (Hospitalization)
  Sender: SAMSUNG BIOEPIS
  Company Number: None

PATIENT
  Age: 55 Year
  Sex: Male
  Weight: 90 kg

DRUGS (1)
  1. INFLIXIMAB [Suspect]
     Active Substance: INFLIXIMAB
     Indication: Colitis ulcerative
     Route: 042
     Dates: start: 20200915

REACTIONS (2)
  - Rash [Recovering/Resolving]
  - Lip swelling [Recovering/Resolving]

NARRATIVE: CASE EVENT DATE: 20200915
